FAERS Safety Report 23256206 (Version 2)
Quarter: 2024Q1

REPORT INFORMATION
  Report Type: Report from Study
  Country: CL (occurrence: CL)
  Receive Date: 20231204
  Receipt Date: 20240108
  Transmission Date: 20240409
  Serious: No
  Sender: FDA-Public Use
  Company Number: CL-JNJFOC-20231134613

PATIENT
  Age: 55 Year
  Sex: Male

DRUGS (1)
  1. SIMPONI [Suspect]
     Active Substance: GOLIMUMAB
     Indication: Rheumatoid arthritis
     Dosage: STRENGTH:  50.00 MG / 0.50 ML
     Route: 058
     Dates: start: 20200106

REACTIONS (3)
  - Device leakage [Unknown]
  - Product dose omission issue [Unknown]
  - Accidental exposure to product [Unknown]
